FAERS Safety Report 4637673-4 (Version None)
Quarter: 2005Q2

REPORT INFORMATION
  Report Type: 
  Country: None (occurrence: None)
  Receive Date: 20050418
  Receipt Date: 20050411
  Transmission Date: 20051028
  Serious: Yes (Hospitalization)
  Sender: FDA-Public Use
  Company Number: PHNU2005DE01601

PATIENT
  Age: 7 Year
  Sex: Male

DRUGS (4)
  1. SANDIMMUNE [Suspect]
     Indication: JUVENILE ARTHRITIS
  2. SANDIMMUNE [Suspect]
     Indication: JUVENILE ARTHRITIS
  3. DECORTIN [Concomitant]
  4. NAPROXEN [Concomitant]

REACTIONS (1)
  - IVTH NERVE PARALYSIS [None]
